FAERS Safety Report 23681430 (Version 1)
Quarter: 2024Q1

REPORT INFORMATION
  Report Type: Spontaneous
  Country: GB (occurrence: GB)
  Receive Date: 20240328
  Receipt Date: 20240328
  Transmission Date: 20240409
  Serious: Yes (Other)
  Sender: FDA-Public Use
  Company Number: None

PATIENT
  Age: 58 Year
  Sex: Female
  Weight: 78 kg

DRUGS (4)
  1. ESCITALOPRAM [Suspect]
     Active Substance: ESCITALOPRAM OXALATE
     Indication: Depression
     Dosage: 5MG ONCE A DAY AT NIGHT; UNIT DOSE 5 MILLIGRAM/LAST ADMIN DATE : MAR 2024
     Route: 048
     Dates: start: 20240305
  2. SIMVASTATIN [Concomitant]
     Active Substance: SIMVASTATIN
     Indication: Blood cholesterol increased
     Route: 065
  3. ESTROGENS [Concomitant]
     Active Substance: ESTROGENS
     Indication: Hormone replacement therapy
     Route: 065
     Dates: start: 20221201
  4. PROGESTERONE [Concomitant]
     Active Substance: PROGESTERONE
     Indication: Hormone replacement therapy
     Route: 065
     Dates: start: 20221201

REACTIONS (3)
  - Menstrual disorder [Not Recovered/Not Resolved]
  - Breast tenderness [Unknown]
  - Nipple pain [Unknown]

NARRATIVE: CASE EVENT DATE: 20240317
